FAERS Safety Report 12637457 (Version 1)
Quarter: 2016Q3

REPORT INFORMATION
  Report Type: Spontaneous
  Country: US (occurrence: US)
  Receive Date: 20160809
  Receipt Date: 20160809
  Transmission Date: 20161109
  Serious: No
  Sender: FDA-Public Use
  Company Number: US-BEH-2016062698

PATIENT
  Sex: Female
  Weight: 83 kg

DRUGS (20)
  1. PRIVIGEN [Suspect]
     Active Substance: HUMAN IMMUNOGLOBULIN G
     Dosage: AS DIRECTED
     Route: 042
  2. OXYCODONE [Concomitant]
     Active Substance: OXYCODONE
  3. LIDOCAINE. [Concomitant]
     Active Substance: LIDOCAINE
  4. SODIUM CHLORIDE. [Concomitant]
     Active Substance: SODIUM CHLORIDE
  5. TRILEPTAL [Concomitant]
     Active Substance: OXCARBAZEPINE
  6. PRIVIGEN [Suspect]
     Active Substance: HUMAN IMMUNOGLOBULIN G
     Route: 042
  7. ACETAMINOPHEN. [Concomitant]
     Active Substance: ACETAMINOPHEN
  8. VALIUM [Concomitant]
     Active Substance: DIAZEPAM
  9. SEROQUEL [Concomitant]
     Active Substance: QUETIAPINE FUMARATE
  10. LEVORA [Concomitant]
     Active Substance: ETHINYL ESTRADIOL\LEVONORGESTREL
  11. LEVOXYL [Concomitant]
     Active Substance: LEVOTHYROXINE SODIUM
  12. PRIVIGEN [Suspect]
     Active Substance: HUMAN IMMUNOGLOBULIN G
     Route: 042
  13. DIPHENHYDRAMINE. [Concomitant]
     Active Substance: DIPHENHYDRAMINE
  14. VISTARIL [Concomitant]
     Active Substance: HYDROXYZINE PAMOATE
  15. EPIPEN [Concomitant]
     Active Substance: EPINEPHRINE
  16. ORPHENADRINE CITRATE. [Concomitant]
     Active Substance: ORPHENADRINE CITRATE
  17. OPANA ER [Concomitant]
     Active Substance: OXYMORPHONE HYDROCHLORIDE
  18. MAXAIR [Concomitant]
     Active Substance: PIRBUTEROL ACETATE
  19. PRIVIGEN [Suspect]
     Active Substance: HUMAN IMMUNOGLOBULIN G
     Indication: CHRONIC INFLAMMATORY DEMYELINATING POLYRADICULONEUROPATHY
     Route: 042
  20. ADVIL [Concomitant]
     Active Substance: IBUPROFEN

REACTIONS (2)
  - Chest discomfort [Unknown]
  - Asthma [Unknown]
